FAERS Safety Report 5511652-7 (Version None)
Quarter: 2007Q4

REPORT INFORMATION
  Report Type: 
  Country: None (occurrence: None)
  Receive Date: 20071109
  Receipt Date: 20071026
  Transmission Date: 20080405
  Serious: Yes (Hospitalization)
  Sender: FDA-Public Use
  Company Number: IT-RANBAXY-2007RR-11115

PATIENT

DRUGS (1)
  1. PARACETAMOLO RANBAXY 120MG/5ML SOLUZIONE ORALE [Suspect]

REACTIONS (3)
  - ANAEMIA [None]
  - HAEMATEMESIS [None]
  - MELAENA [None]
